FAERS Safety Report 24066927 (Version 1)
Quarter: 2024Q3

REPORT INFORMATION
  Report Type: Spontaneous
  Country: CA (occurrence: CA)
  Receive Date: 20240709
  Receipt Date: 20240709
  Transmission Date: 20241017
  Serious: Yes (Other)
  Sender: SANDOZ
  Company Number: CA-SANDOZ-SDZ2024CA063678

PATIENT
  Age: 20 Year
  Sex: Female

DRUGS (1)
  1. CEFTRIAXONE SODIUM [Suspect]
     Active Substance: CEFTRIAXONE SODIUM
     Indication: Pyelonephritis
     Dosage: 2 G
     Route: 030

REACTIONS (2)
  - Unresponsive to stimuli [Unknown]
  - Anaphylactic reaction [Unknown]
